FAERS Safety Report 7574136-0 (Version None)
Quarter: 2011Q2

REPORT INFORMATION
  Report Type: 
  Country: None (occurrence: None)
  Receive Date: 20110627
  Receipt Date: 20110615
  Transmission Date: 20111010
  Serious: Yes (Hospitalization, Other)
  Sender: FDA-Public Use
  Company Number: PHEH2008US03145

PATIENT
  Sex: Female

DRUGS (42)
  1. XELODA [Concomitant]
     Dosage: 500 MG, UNK
     Route: 048
  2. HERCEPTIN [Concomitant]
  3. OXYCONTIN [Concomitant]
  4. MORPHINE SULFATE [Concomitant]
  5. ZITHROMAX [Concomitant]
  6. OXYCODONE HCL [Concomitant]
  7. POLYETHYLENE GLYCOL [Concomitant]
     Dosage: UNK
     Route: 048
  8. METOPROLOL SUCCINATE [Concomitant]
     Dosage: 100 MG, UNK
     Route: 048
  9. ZOMETA [Suspect]
     Dosage: MONTHLY
     Dates: start: 20050701
  10. NIFEREX (POLYSACCHARIDE-IRON COMPLEX) [Concomitant]
  11. LYRICA [Concomitant]
     Dosage: 100 MG, UNK
     Route: 048
  12. EFFEXOR XR [Concomitant]
     Dosage: 75 MG, UNK
     Route: 048
  13. AMBIEN [Concomitant]
     Dosage: 6.25 MG, UNK
     Route: 048
  14. MORPHINE [Concomitant]
     Dosage: 30 MG, UNK
     Route: 048
  15. ZOLADEX [Concomitant]
  16. LIDODERM [Concomitant]
     Dosage: 5 %, UNK
     Route: 061
  17. DILAUDID [Concomitant]
  18. LORAZEPAM [Concomitant]
     Dosage: 2 MG, UNK
     Route: 048
  19. TEMAZEPAM [Concomitant]
     Dosage: 15 MG, UNK
     Route: 048
  20. BACLOFEN [Concomitant]
     Dosage: 20 MG, UNK
     Route: 048
  21. DIAZEPAM [Concomitant]
     Dosage: 5 MG, PRN
     Route: 048
  22. GEMCITABINE HYDROCHLORIDE [Concomitant]
  23. QUADRAMET [Concomitant]
  24. GABAPENTIN [Suspect]
     Dosage: 300 UNK, UNK
     Route: 048
  25. DOXORUBICIN HCL [Concomitant]
  26. PROCHLORPERAZINE TAB [Concomitant]
     Dosage: 10 MG, UNK
     Route: 048
  27. FENTANYL [Concomitant]
  28. METHADONE HCL [Concomitant]
  29. AMOXICILLIN [Concomitant]
  30. IBUPROFEN [Concomitant]
     Dosage: 800 MG, UNK
     Route: 048
  31. MIDRIN [Concomitant]
  32. AREDIA [Suspect]
  33. CYTOXAN [Concomitant]
  34. METRONIDAZOL ^ALPHARMA^ [Concomitant]
  35. ZANAFLEX [Concomitant]
     Dosage: 2 MG, UNK
     Route: 048
  36. SULFAMETHOXYPYRAZINE/TRIMETHOPRIM [Concomitant]
     Dosage: 800-160 MG, UNK
     Route: 048
  37. MILK OF MAGNESIA TAB [Concomitant]
     Dosage: UNK
     Route: 048
  38. PEN-VEE K [Concomitant]
  39. DEXAMETHASONE [Concomitant]
  40. VALIUM [Concomitant]
  41. MULTI-VITAMINS [Concomitant]
  42. FEMARA [Concomitant]

REACTIONS (56)
  - DEPRESSION [None]
  - PARAPLEGIA [None]
  - SPINAL OSTEOARTHRITIS [None]
  - EMOTIONAL DISTRESS [None]
  - ANXIETY [None]
  - PATHOLOGICAL FRACTURE [None]
  - BACK PAIN [None]
  - OVERDOSE [None]
  - PAIN [None]
  - SPINAL FRACTURE [None]
  - METASTASES TO LIVER [None]
  - MUSCLE SPASMS [None]
  - SYNCOPE [None]
  - OSTEOPENIA [None]
  - NAUSEA [None]
  - LETHARGY [None]
  - URINARY INCONTINENCE [None]
  - PELVIC FRACTURE [None]
  - FAECAL INCONTINENCE [None]
  - FALL [None]
  - NEUTROPENIA [None]
  - JOINT SPRAIN [None]
  - INTERVERTEBRAL DISC DEGENERATION [None]
  - NEUROGENIC BLADDER [None]
  - OSTEONECROSIS OF JAW [None]
  - INJURY [None]
  - PHYSICAL DISABILITY [None]
  - COMPRESSION FRACTURE [None]
  - INSOMNIA [None]
  - DYSPNOEA [None]
  - METASTASES TO BONE [None]
  - OSTEONECROSIS [None]
  - ARTHRITIS [None]
  - INFECTION [None]
  - SCAR [None]
  - KYPHOSIS [None]
  - OSTEOPOROSIS [None]
  - CONVULSION [None]
  - PNEUMONIA [None]
  - ARTHRALGIA [None]
  - DIARRHOEA [None]
  - VOMITING [None]
  - CHRONIC OBSTRUCTIVE PULMONARY DISEASE [None]
  - ATELECTASIS [None]
  - LOSS OF CONSCIOUSNESS [None]
  - PAIN IN EXTREMITY [None]
  - FUNGAL INFECTION [None]
  - BEDRIDDEN [None]
  - FEMUR FRACTURE [None]
  - TOOTH INFECTION [None]
  - CONSTIPATION [None]
  - LUNG INFILTRATION [None]
  - OEDEMA PERIPHERAL [None]
  - METASTASES TO SPINE [None]
  - ASTHENIA [None]
  - DELIRIUM [None]
